FAERS Safety Report 6659795-9 (Version None)
Quarter: 2010Q1

REPORT INFORMATION
  Report Type: 
  Country: None (occurrence: None)
  Receive Date: 20100330
  Receipt Date: 20100317
  Transmission Date: 20100710
  Serious: Yes (Hospitalization)
  Sender: FDA-Public Use
  Company Number: GB-WATSON-2010-03825

PATIENT
  Age: 18 Year
  Sex: Female

DRUGS (4)
  1. CIPROFLOXACIN HCL [Suspect]
     Indication: RHINITIS
     Dosage: 1 G, BID
     Route: 048
     Dates: start: 20031128, end: 20031201
  2. CIPROFLOXACIN HCL [Suspect]
     Indication: DYSPNOEA
  3. RIFAMPICIN [Suspect]
     Indication: RHINITIS
     Dosage: 300 MG, BID
     Route: 048
     Dates: start: 20031128, end: 20031201
  4. RIFAMPICIN [Suspect]
     Indication: DYSPNOEA

REACTIONS (8)
  - ACTIVATED PARTIAL THROMBOPLASTIN TIME PROLONGED [None]
  - BLOOD CREATININE INCREASED [None]
  - BLOOD UREA INCREASED [None]
  - COAGULOPATHY [None]
  - INTERNATIONAL NORMALISED RATIO INCREASED [None]
  - THERAPEUTIC AGENT TOXICITY [None]
  - TUBULOINTERSTITIAL NEPHRITIS [None]
  - VOMITING [None]
